FAERS Safety Report 8459992 (Version 2)
Quarter: 2012Q4

REPORT INFORMATION
  Report Type: 
  Country: BR (occurrence: BR)
  Receive Date: 20120314
  Receipt Date: 20121015
  Transmission Date: 20130627
  Serious: Yes (Hospitalization)
  Sender: FDA-Public Use
  Company Number: BR-ASTRAZENECA-2012SE15751

PATIENT
  Age: 62 Year
  Sex: Male

DRUGS (1)
  1. BRILINTA [Suspect]
     Indication: CORONARY ARTERY OCCLUSION
     Route: 048
     Dates: start: 2011, end: 201202

REACTIONS (2)
  - Pain [Recovered/Resolved]
  - Dyspnoea [Recovered/Resolved]
